FAERS Safety Report 6072827-4 (Version None)
Quarter: 2009Q1

REPORT INFORMATION
  Report Type: 
  Country: None (occurrence: None)
  Receive Date: 20090210
  Receipt Date: 20090203
  Transmission Date: 20090719
  Serious: Yes (Hospitalization)
  Sender: FDA-Public Use
  Company Number: KR-ABBOTT-09P-090-0501497-00

PATIENT
  Age: 75 Year
  Sex: Female
  Weight: 44 kg

DRUGS (8)
  1. HUMIRA [Suspect]
     Indication: RHEUMATOID ARTHRITIS
     Route: 058
     Dates: start: 20080602
  2. HUMIRA [Suspect]
     Route: 058
     Dates: start: 20081224
  3. METHOTREXATE [Concomitant]
     Indication: RHEUMATOID ARTHRITIS
     Route: 048
     Dates: start: 20071105
  4. CELECOXIB [Concomitant]
     Indication: PAIN MANAGEMENT
     Route: 048
     Dates: start: 20071105
  5. METHYLPREDNISOLONE 4MG TAB [Concomitant]
     Indication: ANTIINFLAMMATORY THERAPY
     Route: 048
     Dates: start: 20071105
  6. RANITIDINE [Concomitant]
     Indication: PROPHYLAXIS AGAINST GASTROINTESTINAL ULCER
     Route: 048
     Dates: start: 20071105
  7. FOLIC ACID [Concomitant]
     Indication: VITAMIN SUPPLEMENTATION
     Route: 048
     Dates: start: 20071105
  8. NOT REPORTED MEDICATION [Concomitant]
     Indication: OSTEOPOROSIS
     Dates: start: 20071105

REACTIONS (2)
  - DIARRHOEA [None]
  - INTESTINAL PERFORATION [None]
